FAERS Safety Report 9847365 (Version 1)
Quarter: 2014Q1

REPORT INFORMATION
  Report Type: Spontaneous
  Country: US (occurrence: US)
  Receive Date: 20140127
  Receipt Date: 20140127
  Transmission Date: 20141002
  Serious: No
  Sender: FDA-Public Use
  Company Number: US-MYLANLABS-2013S1004083

PATIENT
  Sex: Female

DRUGS (2)
  1. LETROZOLE TABLETS, USP, 2.5MG; MFR/LABLER: SUN PHARM [Suspect]
     Indication: PRODUCT USED FOR UNKNOWN INDICATION
  2. FEMARA [Concomitant]

REACTIONS (1)
  - Drug intolerance [Unknown]
